FAERS Safety Report 15571419 (Version 1)
Quarter: 2018Q4

REPORT INFORMATION
  Report Type: Report from Study
  Country: US (occurrence: US)
  Receive Date: 20181031
  Receipt Date: 20181031
  Transmission Date: 20190205
  Serious: Yes (Hospitalization)
  Sender: FDA-Public Use
  Company Number: US-GILEAD-2018-0371194

PATIENT
  Age: 32 Year
  Sex: Female

DRUGS (3)
  1. ORKAMBI [Concomitant]
     Active Substance: IVACAFTOR\LUMACAFTOR
     Dosage: 200-125MG, 2 TABLETS BID
     Dates: start: 20160310
  2. AZTREONAM LYSINE [Suspect]
     Active Substance: AZTREONAM LYSINE
     Indication: CYSTIC FIBROSIS
     Dosage: 75 MG, TID 28 DAYS ON / 28 DAYS OFF
     Route: 055
     Dates: start: 20160310
  3. PULMOZYME [Concomitant]
     Active Substance: DORNASE ALFA
     Dosage: 2.5MG QD
     Dates: start: 20161008

REACTIONS (1)
  - Ill-defined disorder [Not Recovered/Not Resolved]
